FAERS Safety Report 23853282 (Version 1)
Quarter: 2024Q2

REPORT INFORMATION
  Report Type: Spontaneous
  Country: IT (occurrence: IT)
  Receive Date: 20240514
  Receipt Date: 20240514
  Transmission Date: 20240716
  Serious: Yes (Death)
  Sender: FDA-Public Use
  Company Number: IT-AMGEN-ITASP2024092438

PATIENT

DRUGS (3)
  1. BEVACIZUMAB [Suspect]
     Active Substance: BEVACIZUMAB
     Indication: Glioblastoma
     Dosage: UNK
     Route: 065
  2. FOTEMUSTINE [Concomitant]
     Active Substance: FOTEMUSTINE
     Indication: Glioblastoma
     Dosage: UNK
     Route: 065
  3. REGORAFENIB [Concomitant]
     Active Substance: REGORAFENIB
     Indication: Glioblastoma
     Dosage: UNK
     Route: 065

REACTIONS (4)
  - Glioblastoma [Fatal]
  - Intestinal obstruction [Fatal]
  - Pneumonia [Fatal]
  - Brain empyema [Fatal]
